FAERS Safety Report 18754548 (Version 4)
Quarter: 2022Q2

REPORT INFORMATION
  Report Type: Other
  Country: JP (occurrence: None)
  Receive Date: 20210119
  Receipt Date: 20220511
  Transmission Date: 20220721
  Serious: Yes (Death, Hospitalization)
  Sender: FDA-Public Use
  Company Number: JP-CHUGAI-A2021001609ROCHE

PATIENT
  Age: 47 Year
  Sex: Female

DRUGS (6)
  1. KADCYLA [Suspect]
     Active Substance: ADO-TRASTUZUMAB EMTANSINE
     Indication: HER2 positive breast cancer
     Route: 041
  2. GOSERELIN ACETATE [Concomitant]
     Active Substance: GOSERELIN ACETATE
     Indication: HER2 positive breast cancer
  3. TAMOXIFEN [Concomitant]
     Active Substance: TAMOXIFEN
     Indication: HER2 positive breast cancer
  4. ANASTROZOLE [Concomitant]
     Active Substance: ANASTROZOLE
     Indication: HER2 positive breast cancer
  5. TRASTUZUMAB [Concomitant]
     Active Substance: TRASTUZUMAB
     Indication: HER2 positive breast cancer
     Route: 065
  6. PACLITAXEL [Concomitant]
     Active Substance: PACLITAXEL
     Indication: HER2 positive breast cancer

REACTIONS (4)
  - Ventricular fibrillation [Recovering/Resolving]
  - Cardio-respiratory arrest [Recovering/Resolving]
  - Cardiotoxicity [Recovering/Resolving]
  - Disease progression [Fatal]
